FAERS Safety Report 24634414 (Version 1)
Quarter: 2024Q4

REPORT INFORMATION
  Report Type: Report from Study
  Country: US (occurrence: US)
  Receive Date: 20241119
  Receipt Date: 20241119
  Transmission Date: 20250114
  Serious: No
  Sender: DR REDDYS
  Company Number: US-DRL-USA-CLI/USA/24/0016418

PATIENT
  Age: 5 Year
  Sex: Male
  Weight: 28.35 kg

DRUGS (2)
  1. JAVYGTOR [Suspect]
     Active Substance: SAPROPTERIN DIHYDROCHLORIDE
     Indication: Phenylketonuria
     Dosage: JAVYGTOR 500 MG PACKET 1^S AND JAVYGTOR 100 MG PACKET 1^S?TOTAL DOSE: 600 MG
     Route: 048
  2. JAVYGTOR [Suspect]
     Active Substance: SAPROPTERIN DIHYDROCHLORIDE
     Indication: Phenylketonuria
     Dosage: JAVYGTOR 500 MG PACKET 1^S AND JAVYGTOR 100 MG PACKET 1^S?TOTAL DOSE: 600 MG
     Route: 048

REACTIONS (2)
  - Circumstance or information capable of leading to medication error [Unknown]
  - Product use issue [Unknown]
